FAERS Safety Report 7334344-0 (Version None)
Quarter: 2011Q1

REPORT INFORMATION
  Report Type: 
  Country: None (occurrence: None)
  Receive Date: 20110302
  Receipt Date: 20110302
  Transmission Date: 20110831
  Serious: Yes (Hospitalization)
  Sender: FDA-Public Use
  Company Number: None

PATIENT
  Age: 28 Year
  Sex: Female
  Weight: 78.7 kg

DRUGS (1)
  1. RISPERIDONE [Suspect]
     Dosage: 1/2 TAB MG  HS PO
     Route: 048
     Dates: start: 20110201, end: 20110228

REACTIONS (6)
  - OVERDOSE [None]
  - FEELING ABNORMAL [None]
  - REFUSAL OF TREATMENT BY PATIENT [None]
  - DYSTONIA [None]
  - FALL [None]
  - LOSS OF CONSCIOUSNESS [None]
